FAERS Safety Report 7344916-5 (Version None)
Quarter: 2011Q1

REPORT INFORMATION
  Report Type: 
  Country: None (occurrence: None)
  Receive Date: 20110310
  Receipt Date: 20110301
  Transmission Date: 20110831
  Serious: Yes (Other)
  Sender: FDA-Public Use
  Company Number: FR-ASTRAZENECA-2010SE38033

PATIENT
  Age: 73 Year
  Sex: Male
  Weight: 69 kg

DRUGS (11)
  1. KARDEGIC [Concomitant]
  2. ARTOTEC [Concomitant]
  3. ACETAMINOPHEN [Concomitant]
  4. CRESTOR [Suspect]
     Indication: HYPERCHOLESTEROLAEMIA
     Route: 048
     Dates: start: 20091101, end: 20100401
  5. BAKOL FORT [Concomitant]
  6. LIPANTHYL [Concomitant]
  7. OSCILLOCOCCINUM [Concomitant]
  8. TAHOR [Concomitant]
  9. SILYBUM MARIANUM [Concomitant]
  10. TEMAZEPAM [Concomitant]
  11. VITAMIN B-12 [Concomitant]
     Indication: PERNICIOUS ANAEMIA

REACTIONS (4)
  - MYALGIA [None]
  - TENDON RUPTURE [None]
  - MUSCLE RUPTURE [None]
  - FATIGUE [None]
